FAERS Safety Report 7496423-7 (Version None)
Quarter: 2011Q2

REPORT INFORMATION
  Report Type: 
  Country: None (occurrence: None)
  Receive Date: 20110523
  Receipt Date: 20110517
  Transmission Date: 20111010
  Serious: Yes (Hospitalization, Other)
  Sender: FDA-Public Use
  Company Number: PHBS2006HK01796

PATIENT
  Age: 33 Year
  Sex: Female

DRUGS (7)
  1. CYCLOSPORINE [Suspect]
     Indication: LUNG TRANSPLANT
     Dosage: 799 G, CUMULATIVE DOSE
     Route: 065
  2. PREDNISOLONE [Suspect]
     Indication: LUNG TRANSPLANT
     Dosage: 6.5 G, CUMULATIVE DOSE
     Route: 065
  3. AZATHIOPRINE [Suspect]
     Dosage: 50 MG/DAY
  4. METHOTREXATE [Suspect]
     Indication: LUNG TRANSPLANT
     Dosage: 295 MG, CUMULATIVE DOSE
  5. MYCOPHENOLATE MOFETIL [Suspect]
     Indication: LUNG TRANSPLANT
     Dosage: 1218 G, CUMULATIVE DOSE
  6. AZATHIOPRINE [Suspect]
     Indication: LUNG TRANSPLANT
     Dosage: 39.5 G, CUMULATIVE DOSE
     Route: 065
  7. SIROLIMUS [Suspect]
     Indication: LUNG TRANSPLANT
     Dosage: 0.84 G, CUMULATIVE DOSE

REACTIONS (9)
  - BRONCHOSTENOSIS [None]
  - EPSTEIN-BARR VIRUS ASSOCIATED LYMPHOPROLIFERATIVE DISORDER [None]
  - SKIN LESION [None]
  - RENAL FAILURE CHRONIC [None]
  - MYELODYSPLASTIC SYNDROME [None]
  - PANCYTOPENIA [None]
  - LUNG TRANSPLANT REJECTION [None]
  - PSEUDOMONAS INFECTION [None]
  - ASPERGILLOSIS [None]
